FAERS Safety Report 9239599 (Version 2)
Quarter: 2013Q2

REPORT INFORMATION
  Report Type: Spontaneous
  Country: AU (occurrence: AU)
  Receive Date: 20130418
  Receipt Date: 20130606
  Transmission Date: 20140414
  Serious: Yes (Other)
  Sender: FDA-Public Use
  Company Number: AU-ASTRAZENECA-2013SE24031

PATIENT
  Age: 25 Year
  Sex: Female

DRUGS (3)
  1. SYMBICORT [Suspect]
     Dosage: DOSE UNSPECIFIED
     Route: 055
  2. PULMICORT [Concomitant]
  3. VENTOLIN [Concomitant]

REACTIONS (2)
  - Abortion spontaneous [Unknown]
  - Exposure during pregnancy [Unknown]
